FAERS Safety Report 19784722 (Version 2)
Quarter: 2021Q4

REPORT INFORMATION
  Report Type: Spontaneous
  Country: DE (occurrence: DE)
  Receive Date: 20210903
  Receipt Date: 20211029
  Transmission Date: 20220304
  Serious: Yes (Other)
  Sender: FDA-Public Use
  Company Number: DE-SUN PHARMACEUTICAL INDUSTRIES LTD-2021RR-309950

PATIENT
  Sex: Male
  Weight: 106 kg

DRUGS (1)
  1. HYDROCHLOROTHIAZIDE\VALSARTAN [Suspect]
     Active Substance: HYDROCHLOROTHIAZIDE\VALSARTAN
     Indication: Product used for unknown indication
     Dosage: 1 DOSAGE FORM, DAILY
     Route: 065
     Dates: start: 201508

REACTIONS (15)
  - Dry mouth [Not Recovered/Not Resolved]
  - Erectile dysfunction [Not Recovered/Not Resolved]
  - Ocular discomfort [Not Recovered/Not Resolved]
  - Visual impairment [Not Recovered/Not Resolved]
  - Asthenia [Not Recovered/Not Resolved]
  - Muscle spasms [Not Recovered/Not Resolved]
  - Gout [Not Recovered/Not Resolved]
  - Depression [Not Recovered/Not Resolved]
  - Tinnitus [Not Recovered/Not Resolved]
  - Mucosal pigmentation [Not Recovered/Not Resolved]
  - Pruritus [Not Recovered/Not Resolved]
  - Abnormal sensation in eye [Not Recovered/Not Resolved]
  - Gingival disorder [Not Recovered/Not Resolved]
  - Gingival recession [Not Recovered/Not Resolved]
  - Loss of libido [Not Recovered/Not Resolved]

NARRATIVE: CASE EVENT DATE: 20150801
